FAERS Safety Report 20504086 (Version 1)
Quarter: 2022Q1

REPORT INFORMATION
  Report Type: Report from Study
  Country: US (occurrence: US)
  Receive Date: 20220222
  Receipt Date: 20220222
  Transmission Date: 20220423
  Serious: Yes (Other)
  Sender: FDA-Public Use
  Company Number: US-PFIZER INC-202200301208

PATIENT
  Age: 79 Year
  Sex: Female
  Weight: 63.719 kg

DRUGS (6)
  1. NIRMATRELVIR [Suspect]
     Active Substance: NIRMATRELVIR
     Indication: COVID-19
     Dosage: Q 12H FOR 10 DAYS
     Route: 048
     Dates: start: 20220214, end: 20220216
  2. PLACEBO [Suspect]
     Active Substance: UNSPECIFIED INGREDIENT
     Indication: COVID-19
     Dosage: Q 12H FOR 10 DAYS
     Route: 048
     Dates: start: 20220214, end: 20220216
  3. PLACEBO [Suspect]
     Active Substance: UNSPECIFIED INGREDIENT
     Indication: COVID-19
     Dosage: Q 12H FOR 10 DAYS
     Route: 048
     Dates: start: 20220214, end: 20220216
  4. RITONAVIR [Suspect]
     Active Substance: RITONAVIR
     Indication: COVID-19
     Dosage: Q 12H FOR 10 DAYS
     Route: 048
     Dates: start: 20220214, end: 20220216
  5. IRBESARTAN [Concomitant]
     Active Substance: IRBESARTAN
     Indication: Hypertension
     Dosage: 150 MG, 2X/DAY
     Route: 048
     Dates: start: 1990
  6. LEVOTHYROXINE [Concomitant]
     Active Substance: LEVOTHYROXINE
     Indication: Hypothyroidism
     Dosage: 112 MG, 1X/DAY
     Route: 048
     Dates: start: 2010

REACTIONS (2)
  - Escherichia bacteraemia [Not Recovered/Not Resolved]
  - Renal failure [Not Recovered/Not Resolved]

NARRATIVE: CASE EVENT DATE: 20220214
